FAERS Safety Report 22624096 (Version 1)
Quarter: 2023Q2

REPORT INFORMATION
  Report Type: Spontaneous
  Country: IE (occurrence: IE)
  Receive Date: 20230621
  Receipt Date: 20230621
  Transmission Date: 20230722
  Serious: Yes (Life-Threatening, Hospitalization, Other)
  Sender: FDA-Public Use
  Company Number: IE-PFIZER INC-PV202300106292

PATIENT
  Age: 24 Year
  Sex: Male

DRUGS (1)
  1. SULFASALAZINE [Suspect]
     Active Substance: SULFASALAZINE
     Indication: Psoriatic arthropathy
     Dosage: UNK

REACTIONS (2)
  - Haemophagocytic lymphohistiocytosis [Recovered/Resolved]
  - Off label use [Unknown]
